FAERS Safety Report 15864919 (Version 1)
Quarter: 2019Q1

REPORT INFORMATION
  Report Type: Spontaneous
  Country: GB (occurrence: GB)
  Receive Date: 20190124
  Receipt Date: 20190124
  Transmission Date: 20190417
  Serious: Yes (Other)
  Sender: FDA-Public Use
  Company Number: PHHY2019GB014032

PATIENT
  Age: 38 Year
  Sex: Female
  Weight: 101.6 kg

DRUGS (1)
  1. LABETALOL HYDROCHLORIDE. [Suspect]
     Active Substance: LABETALOL HYDROCHLORIDE
     Indication: GESTATIONAL HYPERTENSION
     Dosage: 400 MG, QD
     Route: 048
     Dates: start: 20181228

REACTIONS (6)
  - Burning sensation [Unknown]
  - Maternal exposure during pregnancy [Unknown]
  - Raynaud^s phenomenon [Not Recovered/Not Resolved]
  - Paraesthesia [Unknown]
  - Pallor [Unknown]
  - Nipple pain [Not Recovered/Not Resolved]

NARRATIVE: CASE EVENT DATE: 20181228
